FAERS Safety Report 21459826 (Version 4)
Quarter: 2023Q1

REPORT INFORMATION
  Report Type: Report from Study
  Country: US (occurrence: US)
  Receive Date: 20221014
  Receipt Date: 20230313
  Transmission Date: 20230418
  Serious: Yes (Hospitalization)
  Sender: FDA-Public Use
  Company Number: US-ABBVIE-4154970

PATIENT
  Sex: Female
  Weight: 67.131 kg

DRUGS (9)
  1. HUMIRA [Suspect]
     Active Substance: ADALIMUMAB
     Indication: Uveitis
     Route: 058
     Dates: start: 202201
  2. HUMIRA [Suspect]
     Active Substance: ADALIMUMAB
     Indication: Rheumatoid arthritis
     Route: 058
     Dates: start: 20220107
  3. HUMIRA [Suspect]
     Active Substance: ADALIMUMAB
     Indication: Colitis ulcerative
     Route: 058
  4. TEGRETOL [Concomitant]
     Active Substance: CARBAMAZEPINE
     Indication: Pain
  5. ASPIRIN [Concomitant]
     Active Substance: ASPIRIN
     Indication: Product used for unknown indication
  6. PFIZER-BIONTECH COVID-19 VACCINE [Suspect]
     Active Substance: TOZINAMERAN
     Indication: COVID-19 immunisation
     Dosage: 1 IN ONCE
     Route: 030
  7. PFIZER-BIONTECH COVID-19 VACCINE [Suspect]
     Active Substance: TOZINAMERAN
     Indication: COVID-19 immunisation
     Dosage: 1 IN ONCE?BOOSTER DOSE
     Route: 030
  8. PFIZER-BIONTECH COVID-19 VACCINE [Suspect]
     Active Substance: TOZINAMERAN
     Indication: COVID-19 immunisation
     Dosage: ONE IN ONCE?3RD COVID BOOSTER
     Route: 030
     Dates: start: 20221207, end: 20221207
  9. SULFADIAZINE [Concomitant]
     Active Substance: SULFADIAZINE
     Indication: Colitis ulcerative

REACTIONS (18)
  - Road traffic accident [Recovering/Resolving]
  - Myalgia [Not Recovered/Not Resolved]
  - Chest pain [Recovered/Resolved]
  - Balance disorder [Unknown]
  - Walking aid user [Unknown]
  - Fibrin D dimer increased [Unknown]
  - Pelvic fracture [Recovering/Resolving]
  - Pain in extremity [Recovered/Resolved]
  - Back pain [Not Recovered/Not Resolved]
  - Troponin increased [Unknown]
  - Vaccination site pain [Not Recovered/Not Resolved]
  - Swelling [Recovered/Resolved]
  - Chest injury [Unknown]
  - Arthritis [Recovered/Resolved]
  - Arthralgia [Not Recovered/Not Resolved]
  - Joint injury [Not Recovered/Not Resolved]
  - Arthralgia [Not Recovered/Not Resolved]
  - Pain [Not Recovered/Not Resolved]

NARRATIVE: CASE EVENT DATE: 20220101
